FAERS Safety Report 6003112-4 (Version None)
Quarter: 2008Q4

REPORT INFORMATION
  Report Type: 
  Country: None (occurrence: None)
  Receive Date: 20081215
  Receipt Date: 20081215
  Transmission Date: 20090506
  Serious: Yes (Death, Hospitalization)
  Sender: FDA-Public Use
  Company Number: None

PATIENT
  Sex: Female
  Weight: 62.7 kg

DRUGS (2)
  1. FLUOROURACIL [Suspect]
     Dosage: 4000 MG
  2. MITOMYCIN [Suspect]
     Dosage: 34 MG

REACTIONS (10)
  - ANAEMIA [None]
  - BRADYARRHYTHMIA [None]
  - BRONCHITIS [None]
  - CARDIAC ARREST [None]
  - CHEST PAIN [None]
  - CHRONIC OBSTRUCTIVE PULMONARY DISEASE [None]
  - CONDITION AGGRAVATED [None]
  - PAIN IN EXTREMITY [None]
  - RESPIRATORY FAILURE [None]
  - SINUS TACHYCARDIA [None]
